FAERS Safety Report 25013130 (Version 2)
Quarter: 2025Q1

REPORT INFORMATION
  Report Type: Spontaneous
  Country: CH (occurrence: CH)
  Receive Date: 20250226
  Receipt Date: 20250326
  Transmission Date: 20250409
  Serious: Yes (Hospitalization)
  Sender: MYLAN
  Company Number: None

PATIENT
  Age: 65 Year
  Sex: Female

DRUGS (4)
  1. CLOZAPINE [Suspect]
     Active Substance: CLOZAPINE
     Indication: Product used for unknown indication
     Dosage: 12.5 MILLIGRAM, QD (ONCE DAILY)
     Dates: start: 20250122, end: 20250124
  2. ZYPREXA [Concomitant]
     Active Substance: OLANZAPINE
  3. Duloxetin sandoz [Concomitant]
  4. WELLBUTRIN XL [Concomitant]
     Active Substance: BUPROPION HYDROCHLORIDE

REACTIONS (1)
  - Disturbance in attention [Recovered/Resolved]

NARRATIVE: CASE EVENT DATE: 20250124
